FAERS Safety Report 5290254-4 (Version None)
Quarter: 2007Q2

REPORT INFORMATION
  Report Type: 
  Country: None (occurrence: None)
  Receive Date: 20070402
  Receipt Date: 20070322
  Transmission Date: 20071010
  Serious: Yes (Other)
  Sender: FDA-Public Use
  Company Number: CHPA2007US02180

PATIENT
  Age: 79 Year
  Sex: Male
  Weight: 79.4 kg

DRUGS (1)
  1. TRANSDERM SCOP [Suspect]
     Indication: MOTION SICKNESS
     Dosage: TRANSDERMAL
     Route: 062

REACTIONS (1)
  - BOWEN'S DISEASE [None]
